FAERS Safety Report 13617333 (Version 1)
Quarter: 2017Q2

REPORT INFORMATION
  Report Type: Spontaneous
  Country: US (occurrence: US)
  Receive Date: 20170606
  Receipt Date: 20170606
  Transmission Date: 20170830
  Serious: No
  Sender: FDA-Public Use
  Company Number: US-SA-2016SA218579

PATIENT

DRUGS (4)
  1. SOLOSTAR [Concomitant]
     Active Substance: DEVICE
     Dates: end: 201611
  2. LANTUS SOLOSTAR [Suspect]
     Active Substance: INSULIN GLARGINE
     Indication: DIABETES MELLITUS
     Dosage: DOSE:36 UNIT(S)
     Route: 065
     Dates: end: 201611
  3. LANTUS SOLOSTAR [Suspect]
     Active Substance: INSULIN GLARGINE
     Indication: DIABETES MELLITUS
     Dosage: DOSE:36 UNIT(S)
     Route: 065
     Dates: end: 201611
  4. SOLOSTAR [Concomitant]
     Active Substance: DEVICE
     Dates: end: 201611

REACTIONS (7)
  - Paraesthesia oral [Unknown]
  - Blood glucose increased [Unknown]
  - Rash [Unknown]
  - Swollen tongue [Unknown]
  - Drug dose omission [Unknown]
  - Lip pain [Unknown]
  - Lip swelling [Unknown]

NARRATIVE: CASE EVENT DATE: 2016
